FAERS Safety Report 15753990 (Version 3)
Quarter: 2020Q1

REPORT INFORMATION
  Report Type: Spontaneous
  Country: GB (occurrence: FR)
  Receive Date: 20181222
  Receipt Date: 20200218
  Transmission Date: 20200409
  Serious: Yes (Other)
  Sender: FDA-Public Use
  Company Number: GB-MYLANLABS-2018M1095304

PATIENT
  Age: 70 Year
  Sex: Male

DRUGS (7)
  1. METHOTREXATE. [Suspect]
     Active Substance: METHOTREXATE
     Dosage: 7.5 MILLIGRAM, QW
     Route: 048
  2. METHOTREXATE. [Suspect]
     Active Substance: METHOTREXATE
     Dosage: 5 MILLIGRAM, QW
     Route: 048
  3. CLOBETASOL [Suspect]
     Active Substance: CLOBETASOL
     Dosage: UNK UNK,UNK
     Route: 061
  4. CLOBETASOL [Suspect]
     Active Substance: CLOBETASOL
     Indication: PEMPHIGOID
     Dosage: UNK UNK,UNK REDUCED DOSE
     Route: 061
  5. CLOBETASOL [Suspect]
     Active Substance: CLOBETASOL
     Dosage: UNK UNK,UNK
     Route: 061
  6. METHOTREXATE. [Suspect]
     Active Substance: METHOTREXATE
     Indication: PEMPHIGOID
     Dosage: 10 MILLIGRAM, QW(10 MG,QW, LOW-DOSE)
     Route: 048
  7. CLOBETASOL [Suspect]
     Active Substance: CLOBETASOL
     Dosage: 30 GRAM, QD
     Route: 061

REACTIONS (9)
  - Rebound effect [Recovered/Resolved]
  - Papule [Recovered/Resolved]
  - Disease recurrence [Recovered/Resolved]
  - Human herpesvirus 8 infection [Unknown]
  - Therapeutic response decreased [Unknown]
  - Pemphigoid [Recovered/Resolved]
  - Immunoglobulins decreased [Recovered/Resolved]
  - Kaposi^s sarcoma [Recovered/Resolved]
  - Drug abuse [Unknown]
